FAERS Safety Report 10900410 (Version 2)
Quarter: 2015Q1

REPORT INFORMATION
  Report Type: Spontaneous
  Country: FR (occurrence: FR)
  Receive Date: 20150310
  Receipt Date: 20150320
  Transmission Date: 20150721
  Serious: Yes (Other)
  Sender: FDA-Public Use
  Company Number: FR-009507513-1503FRA004380

PATIENT
  Age: 67 Year
  Sex: Male

DRUGS (7)
  1. EMEND [Suspect]
     Active Substance: APREPITANT
     Dosage: 80 MG THE 8 FOLLOWING DAYS
     Route: 048
     Dates: start: 20150120, end: 20150127
  2. ARACYTINE [Suspect]
     Active Substance: CYTARABINE
     Indication: LYMPHOMA
     Dosage: FROM DAY-6 UNTIL DAY-3 800 MG
     Route: 042
     Dates: start: 20150121, end: 20150124
  3. EMEND [Suspect]
     Active Substance: APREPITANT
     Indication: PROPHYLAXIS OF NAUSEA AND VOMITING
     Dosage: 125 MG THE 1ST DAY
     Route: 048
     Dates: start: 20150119, end: 20150119
  4. ZOPHREN (ONDANSETRON) [Suspect]
     Active Substance: ONDANSETRON
     Indication: PROPHYLAXIS OF NAUSEA AND VOMITING
     Dosage: 8 MG, QD
     Route: 042
     Dates: start: 20150119, end: 20150125
  5. SOLU-MEDROL [Suspect]
     Active Substance: METHYLPREDNISOLONE SODIUM SUCCINATE
     Indication: PROPHYLAXIS OF NAUSEA AND VOMITING
     Dosage: 80 MG, QD
     Route: 042
     Dates: start: 20150119, end: 20150126
  6. LEVACT [Suspect]
     Active Substance: BENDAMUSTINE HYDROCHLORIDE
     Indication: LYMPHOMA
     Dosage: DAY-8 AND DAY-7 400 MG
     Route: 042
     Dates: start: 20150119, end: 20150120
  7. ETOPOSIDE. [Suspect]
     Active Substance: ETOPOSIDE
     Indication: LYMPHOMA
     Dosage: FROM DAY-6 UNTIL DAY-3 400 MG
     Route: 042
     Dates: start: 20150121, end: 20150124

REACTIONS (1)
  - Atrial fibrillation [Recovered/Resolved]

NARRATIVE: CASE EVENT DATE: 20150122
